FAERS Safety Report 6999712-5 (Version None)
Quarter: 2010Q3

REPORT INFORMATION
  Report Type: 
  Country: None (occurrence: None)
  Receive Date: 20100920
  Receipt Date: 20100104
  Transmission Date: 20110219
  Serious: Yes (Hospitalization)
  Sender: FDA-Public Use
  Company Number: US-ASTRAZENECA-2010SE00666

PATIENT
  Age: 41 Year
  Sex: Male
  Weight: 93 kg

DRUGS (7)
  1. SEROQUEL [Suspect]
     Indication: BIPOLAR DISORDER
     Route: 048
     Dates: start: 20040101, end: 20070101
  2. ABILIFY [Concomitant]
     Dates: start: 20040101
  3. CLOZARIL [Concomitant]
     Dates: start: 20040101
  4. GEODON [Concomitant]
     Dates: start: 20040101
  5. ZYPREXA [Concomitant]
     Dates: start: 20040101
  6. LITHIUM CARBONATE [Concomitant]
     Dates: start: 20040101
  7. PROZAC [Concomitant]
     Dates: start: 20080101

REACTIONS (1)
  - TYPE 2 DIABETES MELLITUS [None]
